FAERS Safety Report 20696830 (Version 1)
Quarter: 2022Q2

REPORT INFORMATION
  Report Type: Other
  Country: FR (occurrence: FR)
  Receive Date: 20220411
  Receipt Date: 20220411
  Transmission Date: 20220720
  Serious: Yes (Other)
  Sender: FDA-Public Use
  Company Number: FR-CELLTRION HEALTHCARE HUNGARY KFT-2020FR018829

PATIENT

DRUGS (2)
  1. RITUXIMAB [Suspect]
     Active Substance: RITUXIMAB
     Indication: Neuromyelitis optica spectrum disorder
     Dosage: 1000 MG TWICE AT A 2-WEEK INTERVAL (INDUCTION DOSE)
     Route: 041
  2. RITUXIMAB [Suspect]
     Active Substance: RITUXIMAB
     Dosage: 1000 MG MAINTENANCE DOSE (INDIVIDUALIZED DOSING SCHEDULE)
     Route: 042

REACTIONS (3)
  - Pyelonephritis [Unknown]
  - Off label use [Unknown]
  - Pneumonitis [Unknown]
